FAERS Safety Report 7893390-9 (Version None)
Quarter: 2011Q4

REPORT INFORMATION
  Report Type: 
  Country: None (occurrence: None)
  Receive Date: 20111104
  Receipt Date: 20111021
  Transmission Date: 20120403
  Serious: Yes (Death, Hospitalization)
  Sender: FDA-Public Use
  Company Number: TR-MUTUAL PHARMACEUTICAL COMPANY, INC.-CLHC20110048

PATIENT
  Age: 76 Year
  Sex: Male
  Weight: 70 kg

DRUGS (5)
  1. COLCHICINE [Suspect]
     Route: 048
  2. VERAPAMIL SUSTAINED-RELEASE [Concomitant]
     Indication: PRODUCT USED FOR UNKNOWN INDICATION
     Route: 048
  3. COLCHICINE [Suspect]
     Indication: GOUT
     Route: 048
  4. PERINDOPRIL-HYDROCHOLOROTHIAZIDE 10/12.5 MG [Concomitant]
     Indication: PRODUCT USED FOR UNKNOWN INDICATION
     Route: 048
  5. RAPEGLINID 0.5 MG [Concomitant]
     Indication: TYPE 2 DIABETES MELLITUS
     Route: 048

REACTIONS (13)
  - OEDEMA PERIPHERAL [None]
  - BICYTOPENIA [None]
  - SEPSIS [None]
  - DEHYDRATION [None]
  - CARDIAC MURMUR [None]
  - ANURIA [None]
  - BLOOD CREATININE INCREASED [None]
  - MULTI-ORGAN FAILURE [None]
  - METABOLIC ACIDOSIS [None]
  - DIARRHOEA [None]
  - PYREXIA [None]
  - SYSTEMIC INFLAMMATORY RESPONSE SYNDROME [None]
  - BLOOD UREA INCREASED [None]
